FAERS Safety Report 14638363 (Version 1)
Quarter: 2018Q1

REPORT INFORMATION
  Report Type: Spontaneous
  Country: US (occurrence: US)
  Receive Date: 20180314
  Receipt Date: 20180314
  Transmission Date: 20180509
  Serious: Yes (Other)
  Sender: FDA-Public Use
  Company Number: None

PATIENT
  Age: 64 Year
  Sex: Female
  Weight: 66.68 kg

DRUGS (9)
  1. ATORVASTATIN 40MG [Suspect]
     Active Substance: ATORVASTATIN
     Indication: HYPERLIPIDAEMIA
     Route: 048
     Dates: start: 20160625
  2. ROSUVASTATIN. [Concomitant]
     Active Substance: ROSUVASTATIN
  3. ATORVASTATIN 40MG [Suspect]
     Active Substance: ATORVASTATIN
     Indication: HEADACHE
     Route: 048
     Dates: start: 20160625
  4. SIMVASTATIN 10MG [Suspect]
     Active Substance: SIMVASTATIN
     Indication: HEADACHE
     Route: 048
     Dates: start: 20160106, end: 20170714
  5. SIMVASTATIN 10MG [Suspect]
     Active Substance: SIMVASTATIN
     Indication: MYALGIA
     Route: 048
     Dates: start: 20160106, end: 20170714
  6. ATORVASTATIN 40MG [Suspect]
     Active Substance: ATORVASTATIN
     Indication: MYALGIA
     Route: 048
     Dates: start: 20160625
  7. SIMVASTATIN 10MG [Suspect]
     Active Substance: SIMVASTATIN
     Indication: HYPERLIPIDAEMIA
     Route: 048
     Dates: start: 20160106, end: 20170714
  8. SIMVASTATIN 10MG [Suspect]
     Active Substance: SIMVASTATIN
     Indication: SOMNOLENCE
     Route: 048
     Dates: start: 20160106, end: 20170714
  9. ATORVASTATIN 40MG [Suspect]
     Active Substance: ATORVASTATIN
     Indication: SOMNOLENCE
     Route: 048
     Dates: start: 20160625

REACTIONS (3)
  - Myalgia [None]
  - Fatigue [None]
  - Drug ineffective [None]
